FAERS Safety Report 20263319 (Version 1)
Quarter: 2021Q4

REPORT INFORMATION
  Report Type: Report from Study
  Country: BR (occurrence: BR)
  Receive Date: 20211231
  Receipt Date: 20211231
  Transmission Date: 20220303
  Serious: Yes (Hospitalization, Other)
  Sender: FDA-Public Use
  Company Number: BR-UCBSA-2021060895

PATIENT
  Age: 61 Year
  Sex: Female
  Weight: 50 kg

DRUGS (4)
  1. LACOSAMIDE [Suspect]
     Active Substance: LACOSAMIDE
     Indication: Epilepsy
     Dosage: 150 MG DAILY
     Route: 048
     Dates: start: 2015
  2. CLOBAZAM [Concomitant]
     Active Substance: CLOBAZAM
     Indication: Epilepsy
     Dosage: 20 MG
     Route: 048
  3. AMITRIPTYLINE HYDROCHLORIDE [Concomitant]
     Active Substance: AMITRIPTYLINE HYDROCHLORIDE
     Indication: Epilepsy
     Dosage: 10 MG
     Route: 048
  4. PROLIA [Concomitant]
     Active Substance: DENOSUMAB
     Indication: Osteoporosis
     Dosage: UNK
     Route: 048

REACTIONS (1)
  - Brain operation [Recovered/Resolved]

NARRATIVE: CASE EVENT DATE: 20170101
